FAERS Safety Report 20524420 (Version 1)
Quarter: 2022Q1

REPORT INFORMATION
  Report Type: Spontaneous
  Country: US (occurrence: US)
  Receive Date: 20220228
  Receipt Date: 20220228
  Transmission Date: 20220423
  Serious: No
  Sender: FDA-Public Use
  Company Number: US-Ipsen Biopharmaceuticals, Inc.-2022-04820

PATIENT
  Sex: Female
  Weight: 72.5 kg

DRUGS (1)
  1. SOMATULINE DEPOT [Suspect]
     Active Substance: LANREOTIDE ACETATE
     Indication: Acromegaly
     Dosage: 120 MG EVERY 4 WEEKS
     Route: 058
     Dates: start: 2016

REACTIONS (2)
  - Blood pressure increased [Not Recovered/Not Resolved]
  - Inappropriate schedule of product administration [Unknown]
